FAERS Safety Report 4842303-2 (Version None)
Quarter: 2005Q4

REPORT INFORMATION
  Report Type: 
  Country: None (occurrence: None)
  Receive Date: 20051129
  Receipt Date: 20051114
  Transmission Date: 20060501
  Serious: Yes (Death, Hospitalization, Other)
  Sender: FDA-Public Use
  Company Number: US200511000626

PATIENT
  Age: 64 Year
  Sex: Female

DRUGS (1)
  1. ZYPREXA [Suspect]
     Indication: SCHIZOPHRENIA
     Dosage: 20 MG, ORAL
     Route: 048
     Dates: end: 20050305

REACTIONS (6)
  - CARDIAC ARREST [None]
  - DIALYSIS [None]
  - DRUG EFFECT DECREASED [None]
  - MENTAL STATUS CHANGES [None]
  - PROCEDURAL COMPLICATION [None]
  - RENAL FAILURE [None]
